FAERS Safety Report 18429308 (Version 1)
Quarter: 2020Q4

REPORT INFORMATION
  Report Type: Spontaneous
  Country: US (occurrence: US)
  Receive Date: 20201026
  Receipt Date: 20201026
  Transmission Date: 20210114
  Serious: No
  Sender: FDA-Public Use
  Company Number: US-GILEAD-2020-0500153

PATIENT
  Sex: Male

DRUGS (7)
  1. LOSARTAN POTASSIUM. [Concomitant]
     Active Substance: LOSARTAN POTASSIUM
  2. SYNTHROID [Concomitant]
     Active Substance: LEVOTHYROXINE SODIUM
  3. VEMLIDY [Suspect]
     Active Substance: TENOFOVIR ALAFENAMIDE FUMARATE
     Indication: CHRONIC HEPATITIS B
     Dosage: VEMLIDY 25MG TABLET  |  TAKE 1 TAB (25 MG TOTAL) BY MOUTH DAILY IN THE MORNING WITH FOOD
     Route: 065
     Dates: start: 201710
  4. METOPROLOL SUCCINATE. [Concomitant]
     Active Substance: METOPROLOL SUCCINATE
  5. ASPIR-81 [Concomitant]
     Active Substance: ASPIRIN
  6. DAPSONE. [Concomitant]
     Active Substance: DAPSONE
  7. VIAGRA [SILDENAFIL CITRATE] [Concomitant]

REACTIONS (1)
  - Product dose omission issue [Unknown]
